FAERS Safety Report 8566668 (Version 3)
Quarter: 2012Q4

REPORT INFORMATION
  Report Type: 
  Country: FR (occurrence: FR)
  Receive Date: 20120517
  Receipt Date: 20121017
  Transmission Date: 20130627
  Serious: Yes (Hospitalization, Other)
  Sender: FDA-Public Use
  Company Number: FR-PFIZER INC-2012117824

PATIENT
  Age: 76 Year
  Sex: Male

DRUGS (10)
  1. CORDARONE [Suspect]
     Indication: PRODUCT USED FOR UNKNOWN INDICATION
     Dosage: 200 mg, daily
     Route: 065
     Dates: end: 20110405
  2. CRESTOR [Concomitant]
     Dosage: UNK
  3. PREVISCAN [Concomitant]
     Dosage: UNK
  4. NISIS [Concomitant]
     Dosage: UNK
  5. GLUCOPHAGE [Concomitant]
     Dosage: UNK
  6. FUROSEMIDE [Concomitant]
     Dosage: UNK
  7. ATENOLOL [Concomitant]
     Dosage: UNK
     Dates: end: 20110405
  8. KARDEGIC [Concomitant]
     Dosage: UNK
  9. AMLODIPINE [Concomitant]
     Dosage: UNK
  10. ANDROCUR [Concomitant]
     Dosage: UNK

REACTIONS (10)
  - Hypotension [Unknown]
  - Bradycardia [Recovering/Resolving]
  - Tachypnoea [Unknown]
  - Renal failure acute [Recovering/Resolving]
  - Metabolic acidosis [Unknown]
  - Fall [Unknown]
  - Hyperkalaemia [Unknown]
  - Hyperlactacidaemia [Unknown]
  - Diarrhoea [Unknown]
  - Diabetes mellitus [Unknown]
